FAERS Safety Report 13547244 (Version 5)
Quarter: 2018Q2

REPORT INFORMATION
  Report Type: Spontaneous
  Country: US (occurrence: US)
  Receive Date: 20170515
  Receipt Date: 20180628
  Transmission Date: 20180711
  Serious: Yes (Hospitalization)
  Sender: FDA-Public Use
  Company Number: US-ACTELION-A-NJ2017-153373

PATIENT
  Age: 17 Month
  Sex: Female

DRUGS (2)
  1. TRACLEER [Suspect]
     Active Substance: BOSENTAN
     Indication: PULMONARY ARTERIAL HYPERTENSION
     Dosage: 15.625 MG, BID
     Route: 048
     Dates: start: 20161109
  2. TRACLEER [Suspect]
     Active Substance: BOSENTAN
     Dosage: 32 MG, BID
     Route: 048
     Dates: start: 20161206

REACTIONS (10)
  - Transient ischaemic attack [Unknown]
  - Tracheostomy malfunction [Unknown]
  - Tracheobronchitis [Recovered/Resolved]
  - Drug administered to patient of inappropriate age [Unknown]
  - Tracheitis [Unknown]
  - Pericardial effusion [Unknown]
  - Pleural effusion [Unknown]
  - Surgery [Unknown]
  - Rhinovirus infection [Unknown]
  - Dyspnoea [Unknown]

NARRATIVE: CASE EVENT DATE: 20170424
